FAERS Safety Report 6806288-1 (Version None)
Quarter: 2010Q2

REPORT INFORMATION
  Report Type: 
  Country: None (occurrence: None)
  Receive Date: 20100629
  Receipt Date: 20080304
  Transmission Date: 20101027
  Serious: No
  Sender: FDA-Public Use
  Company Number: US-PFIZER INC-2008003449

PATIENT
  Sex: Male
  Weight: 77.272 kg

DRUGS (7)
  1. VIAGRA [Suspect]
     Dates: start: 20010101
  2. AMLODIPINE [Interacting]
     Indication: BLOOD PRESSURE
  3. LISINOPRIL [Interacting]
     Indication: BLOOD PRESSURE
  4. PROPRANOLOL [Interacting]
     Indication: BLOOD PRESSURE
  5. TROSPIUM CHLORIDE [Concomitant]
  6. HYDROCHLOROTHIAZIDE [Concomitant]
  7. VITAMINS [Concomitant]

REACTIONS (4)
  - DRUG INEFFECTIVE [None]
  - DRUG INTERACTION [None]
  - ERECTILE DYSFUNCTION [None]
  - WEIGHT DECREASED [None]
